FAERS Safety Report 15612386 (Version 4)
Quarter: 2019Q1

REPORT INFORMATION
  Report Type: Report from Study
  Country: NO (occurrence: NO)
  Receive Date: 20181113
  Receipt Date: 20190124
  Transmission Date: 20190417
  Serious: Yes (Death, Life-Threatening, Other)
  Sender: FDA-Public Use
  Company Number: NO-CELGENEUS-NOR-20181101015

PATIENT
  Age: 59 Year
  Sex: Female

DRUGS (1)
  1. REVLIMID [Suspect]
     Active Substance: LENALIDOMIDE
     Indication: ACUTE MYELOID LEUKAEMIA
     Route: 048
     Dates: start: 20151006, end: 20151013

REACTIONS (1)
  - Rectal adenocarcinoma [Fatal]

NARRATIVE: CASE EVENT DATE: 20170804
